FAERS Safety Report 24843056 (Version 1)
Quarter: 2025Q1

REPORT INFORMATION
  Report Type: Report from Study
  Country: US (occurrence: US)
  Receive Date: 20250115
  Receipt Date: 20250115
  Transmission Date: 20250409
  Serious: No
  Sender: HRA PHARMA
  Company Number: US-ORG100014127-2024000142

PATIENT
  Age: 53 Year
  Sex: Male

DRUGS (13)
  1. LYSODREN [Suspect]
     Active Substance: MITOTANE
     Indication: Adrenocortical carcinoma
     Dosage: 500 MG: 8 TABLETS DAILY
     Route: 048
     Dates: start: 20240405
  2. ACETAMINOPHN TAB 500MG [Concomitant]
     Indication: Product used for unknown indication
  3. CYPROHEPTADINE [Concomitant]
     Active Substance: CYPROHEPTADINE
     Indication: Product used for unknown indication
  4. FLUTICASONE [Concomitant]
     Active Substance: FLUTICASONE
     Indication: Product used for unknown indication
  5. Jakafi tab 10mg [Concomitant]
     Indication: Product used for unknown indication
  6. loperamide Cap 2mg [Concomitant]
     Indication: Product used for unknown indication
  7. midodrine tab 5mg [Concomitant]
     Indication: Product used for unknown indication
  8. MONTELUKAST SODIUM [Concomitant]
     Active Substance: MONTELUKAST SODIUM
     Indication: Product used for unknown indication
  9. OMEPRAZOLE [Concomitant]
     Active Substance: OMEPRAZOLE
     Indication: Product used for unknown indication
  10. pantoprazole tab 40mg [Concomitant]
     Indication: Product used for unknown indication
  11. sertraline tab 25mg [Concomitant]
     Indication: Product used for unknown indication
  12. ZOLPIDEM [Concomitant]
     Active Substance: ZOLPIDEM TARTRATE
     Indication: Product used for unknown indication
  13. BENAZEP/HCTZ TAB 20-12.5; [Concomitant]
     Indication: Product used for unknown indication

REACTIONS (3)
  - Feeling abnormal [Recovered/Resolved]
  - Fatigue [Not Recovered/Not Resolved]
  - Diarrhoea [Not Recovered/Not Resolved]
